FAERS Safety Report 9358141 (Version 1)
Quarter: 2013Q2

REPORT INFORMATION
  Report Type: Spontaneous
  Country: BR (occurrence: BR)
  Receive Date: 20130620
  Receipt Date: 20130620
  Transmission Date: 20140414
  Serious: Yes (Other)
  Sender: FDA-Public Use
  Company Number: BR-PFIZER INC-2013185791

PATIENT
  Age: 55 Year
  Sex: Female

DRUGS (2)
  1. CHAMPIX [Suspect]
     Dosage: UNK
  2. CHAMPIX [Suspect]
     Dosage: ONE TABLET DURING THE DAY AND ONE TABLET AT NIGHT

REACTIONS (4)
  - Osteoarthritis [Unknown]
  - Nausea [Unknown]
  - Vomiting [Unknown]
  - Abdominal pain [Unknown]
